FAERS Safety Report 13178236 (Version 1)
Quarter: 2017Q1

REPORT INFORMATION
  Report Type: Spontaneous
  Country: FR (occurrence: FR)
  Receive Date: 20170202
  Receipt Date: 20170202
  Transmission Date: 20170428
  Serious: Yes (Hospitalization, Other)
  Sender: FDA-Public Use
  Company Number: FR-ROCHE-1887217

PATIENT
  Age: 56 Year
  Sex: Male

DRUGS (8)
  1. SOTALEX [Concomitant]
     Active Substance: SOTALOL
  2. DIFFU K [Concomitant]
     Active Substance: POTASSIUM CHLORIDE
  3. SOLUPRED (FRANCE) [Suspect]
     Active Substance: PREDNISOLONE
     Indication: POLYARTHRITIS
     Route: 048
     Dates: start: 2012
  4. XAGRID [Concomitant]
     Active Substance: ANAGRELIDE HYDROCHLORIDE
     Indication: ESSENTIAL THROMBOCYTHAEMIA
     Route: 048
     Dates: start: 2009
  5. ROACTEMRA [Suspect]
     Active Substance: TOCILIZUMAB
     Indication: POLYMYALGIA RHEUMATICA
     Dosage: 800 MG
     Route: 041
     Dates: start: 20161213, end: 20161213
  6. LEVOTHYROX [Concomitant]
     Active Substance: LEVOTHYROXINE
  7. ASPIRINE [Concomitant]
     Active Substance: ASPIRIN
  8. ALDACTAZINE [Concomitant]
     Active Substance: ALTHIAZIDE\SPIRONOLACTONE

REACTIONS (3)
  - Off label use [Unknown]
  - Product use issue [Unknown]
  - Pancreatitis acute [Recovered/Resolved]

NARRATIVE: CASE EVENT DATE: 20161229
